FAERS Safety Report 5822594-1 (Version None)
Quarter: 2008Q3

REPORT INFORMATION
  Report Type: 
  Country: None (occurrence: None)
  Receive Date: 20080723
  Receipt Date: 20080723
  Transmission Date: 20090109
  Serious: No
  Sender: FDA-Public Use
  Company Number: None

PATIENT
  Age: 64 Year
  Sex: Male
  Weight: 74.55 kg

DRUGS (1)
  1. VARENICLINE [Suspect]
     Dosage: 1 MG BID PO
     Route: 048
     Dates: start: 20080207, end: 20080625

REACTIONS (1)
  - URINARY RETENTION [None]
